FAERS Safety Report 14706517 (Version 3)
Quarter: 2018Q2

REPORT INFORMATION
  Report Type: Report from Study
  Country: US (occurrence: US)
  Receive Date: 20180402
  Receipt Date: 20180621
  Transmission Date: 20180711
  Serious: Yes (Other)
  Sender: FDA-Public Use
  Company Number: US-ACTELION-A-NJ2016-134791

PATIENT
  Age: 71 Year
  Sex: Female
  Weight: 57.14 kg

DRUGS (5)
  1. OPSUMIT [Suspect]
     Active Substance: MACITENTAN
     Dosage: UNK
     Route: 048
  2. VELETRI [Suspect]
     Active Substance: EPOPROSTENOL
     Indication: PULMONARY HYPERTENSION
     Dosage: 20 NG/KG, PER MIN
     Route: 042
     Dates: start: 20150225
  3. OPSUMIT [Suspect]
     Active Substance: MACITENTAN
     Indication: PULMONARY HYPERTENSION
     Dosage: 10 MG, QD
     Route: 048
     Dates: start: 20140128
  4. ADCIRCA [Concomitant]
     Active Substance: TADALAFIL
  5. VELETRI [Suspect]
     Active Substance: EPOPROSTENOL
     Dosage: UNK
     Route: 042

REACTIONS (24)
  - Nausea [Unknown]
  - Weight decreased [Unknown]
  - Upper respiratory tract infection [Unknown]
  - Body temperature increased [Unknown]
  - Hip surgery [Unknown]
  - Diarrhoea [Unknown]
  - Dyspnoea [Unknown]
  - Oropharyngeal pain [Unknown]
  - Rheumatoid arthritis [Unknown]
  - Cardiac operation [Unknown]
  - Hypoacusis [Unknown]
  - Fatigue [Unknown]
  - Malaise [Unknown]
  - Asthenia [Unknown]
  - Dyspnoea exertional [Unknown]
  - Musculoskeletal discomfort [Unknown]
  - Ear pain [Unknown]
  - Joint swelling [Unknown]
  - Oedema peripheral [Unknown]
  - Palpitations [Unknown]
  - Ear infection [Unknown]
  - Polyuria [Unknown]
  - Arthralgia [Unknown]
  - Polyarthritis [Unknown]

NARRATIVE: CASE EVENT DATE: 20160410
